FAERS Safety Report 20823868 (Version 6)
Quarter: 2022Q3

REPORT INFORMATION
  Report Type: Report from Study
  Country: US (occurrence: US)
  Receive Date: 20220513
  Receipt Date: 20220810
  Transmission Date: 20221027
  Serious: Yes (Death, Hospitalization)
  Sender: FDA-Public Use
  Company Number: US-NOVARTISPH-NVSC2022US106466

PATIENT
  Sex: Female

DRUGS (1)
  1. COSENTYX [Suspect]
     Active Substance: SECUKINUMAB
     Indication: Product used for unknown indication
     Dosage: 300 MG, QW
     Route: 058
     Dates: start: 20210506, end: 20210603

REACTIONS (10)
  - Death [Fatal]
  - Psoriatic arthropathy [Unknown]
  - Diverticulitis [Unknown]
  - Amnesia [Unknown]
  - Arthritis [Unknown]
  - Arthropathy [Unknown]
  - Product dose omission issue [Unknown]
  - Somnolence [Unknown]
  - Pain [Unknown]
  - Urinary tract infection [Unknown]
